FAERS Safety Report 15666285 (Version 1)
Quarter: 2018Q4

REPORT INFORMATION
  Report Type: Spontaneous
  Country: US (occurrence: US)
  Receive Date: 20181128
  Receipt Date: 20181128
  Transmission Date: 20190205
  Serious: Yes (Hospitalization)
  Sender: FDA-Public Use
  Company Number: None

PATIENT
  Age: 54 Year
  Sex: Female
  Weight: 68.9 kg

DRUGS (6)
  1. BELVIQ [Suspect]
     Active Substance: LORCASERIN HYDROCHLORIDE
     Indication: WEIGHT CONTROL
     Route: 048
     Dates: start: 20180518, end: 20180809
  2. ASPIRIN (LOW DOSE) [Concomitant]
     Dates: start: 20170715
  3. MAGNESIUM GLUCONATE [Concomitant]
     Active Substance: MAGNESIUM GLUCONATE
     Dates: start: 20170615
  4. CALCIUM GLUCONATE. [Concomitant]
     Active Substance: CALCIUM GLUCONATE
     Dates: start: 20170715
  5. CO-Q10 [Concomitant]
     Dates: start: 20160615
  6. MULTIVITAMIN [Concomitant]
     Active Substance: VITAMINS
     Dates: start: 20160615

REACTIONS (5)
  - Fatigue [None]
  - Vomiting [None]
  - Aphasia [None]
  - Psychogenic seizure [None]
  - Presyncope [None]

NARRATIVE: CASE EVENT DATE: 20180812
